FAERS Safety Report 7589778-6 (Version None)
Quarter: 2011Q3

REPORT INFORMATION
  Report Type: 
  Country: None (occurrence: None)
  Receive Date: 20110705
  Receipt Date: 20110629
  Transmission Date: 20111222
  Serious: Yes (Other)
  Sender: FDA-Public Use
  Company Number: A0933855A

PATIENT
  Age: 48 Year
  Sex: Female

DRUGS (1)
  1. ALLI [Suspect]
     Route: 048
     Dates: end: 20110607

REACTIONS (4)
  - ABDOMINAL DISTENSION [None]
  - STEATORRHOEA [None]
  - ILL-DEFINED DISORDER [None]
  - RECTAL HAEMORRHAGE [None]
